FAERS Safety Report 8131132-2 (Version None)
Quarter: 2012Q1

REPORT INFORMATION
  Report Type: 
  Country: None (occurrence: None)
  Receive Date: 20120209
  Receipt Date: 20120209
  Transmission Date: 20120608
  Serious: Yes (Hospitalization)
  Sender: FDA-Public Use
  Company Number: None

PATIENT
  Age: 60 Year
  Sex: Male

DRUGS (19)
  1. NEXIUM [Concomitant]
  2. OXYCODONE HCL [Concomitant]
  3. ZOFRAN [Concomitant]
  4. SINGULAIR [Concomitant]
  5. FUROSEMIDE [Concomitant]
  6. ATIVAN [Concomitant]
  7. LEVIMIR [Concomitant]
  8. CIPROFLOXACIN [Concomitant]
  9. LACTULOSE [Concomitant]
  10. MULTI-VITAMIN [Concomitant]
  11. NOVOLOG [Concomitant]
  12. PRECOSE [Concomitant]
  13. VITAMIN D [Concomitant]
  14. SILIPHOS (SYLYBIN-PHOSPHATIDYLCHOLINE COMPLEX) [Suspect]
     Indication: HEPATIC FUNCTION ABNORMAL
     Dosage: 666MG, TID, PO
     Route: 048
     Dates: start: 20111207, end: 20120124
  15. SILIPHOS (SYLYBIN-PHOSPHATIDYLCHOLINE COMPLEX) [Suspect]
     Indication: HEPATIC NEOPLASM MALIGNANT
     Dosage: 666MG, TID, PO
     Route: 048
     Dates: start: 20111207, end: 20120124
  16. ALDACTONE [Concomitant]
  17. XIFAXAN [Concomitant]
  18. CALCIUM [Concomitant]
  19. VIT B6 [Concomitant]

REACTIONS (2)
  - POST PROCEDURAL COMPLICATION [None]
  - RECTAL HAEMORRHAGE [None]
